FAERS Safety Report 5251178-1 (Version None)
Quarter: 2007Q1

REPORT INFORMATION
  Report Type: 
  Country: None (occurrence: None)
  Receive Date: 20070228
  Receipt Date: 20060911
  Transmission Date: 20070707
  Serious: No
  Sender: FDA-Public Use
  Company Number: US-GLAXOSMITHKLINE-A0619771A

PATIENT
  Age: 38 Year
  Sex: Female

DRUGS (4)
  1. LAMICTAL [Suspect]
     Indication: BIPOLAR DISORDER
     Dosage: 300MG VARIABLE DOSE
     Route: 048
  2. RISPERDAL [Concomitant]
  3. CLONAZEPAM [Concomitant]
  4. UNKNOWN MEDICATION [Concomitant]

REACTIONS (1)
  - RASH [None]
